FAERS Safety Report 8961637 (Version 2)
Quarter: 2013Q1

REPORT INFORMATION
  Report Type: Spontaneous
  Country: US (occurrence: US)
  Receive Date: 20121212
  Receipt Date: 20130107
  Transmission Date: 20140127
  Serious: Yes (Death)
  Sender: FDA-Public Use
  Company Number: US-CELGENEUS-163-21880-12120982

PATIENT
  Age: 67 Year
  Sex: Male

DRUGS (6)
  1. REVLIMID [Suspect]
     Indication: LYMPHOMA
     Dosage: 15 MILLIGRAM
     Route: 048
     Dates: start: 20120822, end: 2012
  2. AMIODARONE [Concomitant]
     Indication: ATRIAL FIBRILLATION
     Dosage: 200 MILLIGRAM
     Route: 048
  3. MAGNESIUM OXIDE [Concomitant]
     Indication: BLOOD MAGNESIUM DECREASED
     Dosage: 800 MILLIGRAM
     Route: 048
  4. METOPROLOL [Concomitant]
     Indication: HYPERTENSION
     Dosage: 200 MILLIGRAM
     Route: 048
  5. DILTIAZEM [Concomitant]
     Indication: HYPERTENSION
     Dosage: 180 MILLIGRAM
     Route: 048
  6. ALLOPURINOL [Concomitant]
     Indication: GOUT
     Dosage: 100 MILLIGRAM
     Route: 048

REACTIONS (1)
  - Lymphoma [Fatal]
